FAERS Safety Report 10420615 (Version 1)
Quarter: 2014Q3

REPORT INFORMATION
  Report Type: Spontaneous
  Country: US (occurrence: None)
  Receive Date: 20140828
  Receipt Date: 20140828
  Transmission Date: 20150326
  Serious: No
  Sender: FDA-Public Use
  Company Number: None

PATIENT
  Age: 39 Year
  Sex: Female
  Weight: 65.77 kg

DRUGS (1)
  1. IMITREX [Suspect]
     Active Substance: SUMATRIPTAN\SUMATRIPTAN SUCCINATE
     Indication: MIGRAINE
     Dosage: 100MG/ 1 TABLET AS NEEDED TAKEN BY MOUTH
     Route: 048
     Dates: start: 20140827, end: 20140827

REACTIONS (10)
  - Chest discomfort [None]
  - Hyperhidrosis [None]
  - Muscular weakness [None]
  - Nausea [None]
  - Dyspnoea [None]
  - Balance disorder [None]
  - Tremor [None]
  - Head titubation [None]
  - Limb discomfort [None]
  - Headache [None]

NARRATIVE: CASE EVENT DATE: 20140827
